FAERS Safety Report 7987229-0 (Version None)
Quarter: 2011Q4

REPORT INFORMATION
  Report Type: 
  Country: None (occurrence: None)
  Receive Date: 20111216
  Receipt Date: 20111206
  Transmission Date: 20120403
  Serious: Yes (Hospitalization)
  Sender: FDA-Public Use
  Company Number: US-JNJFOC-20111202739

PATIENT
  Sex: Female
  Weight: 40.1 kg

DRUGS (12)
  1. PEPTAMEN [Concomitant]
  2. INFLIXIMAB, RECOMBINANT [Suspect]
     Route: 042
     Dates: start: 20080205
  3. FOLIC ACID [Concomitant]
  4. HUMIRA [Concomitant]
  5. CHOLECALCIFEROL [Concomitant]
  6. PREVACID [Concomitant]
  7. METHOTREXATE [Concomitant]
  8. RIFAXIMIN [Concomitant]
  9. INFLIXIMAB, RECOMBINANT [Suspect]
     Indication: INFLAMMATORY BOWEL DISEASE
     Route: 042
     Dates: start: 20090614
  10. PREDNISONE [Concomitant]
  11. MULTIVITAMIN [Concomitant]
  12. FISH OIL [Concomitant]

REACTIONS (1)
  - CROHN'S DISEASE [None]
